FAERS Safety Report 5055286-X (Version None)
Quarter: 2006Q3

REPORT INFORMATION
  Report Type: 
  Country: None (occurrence: None)
  Receive Date: 20060717
  Receipt Date: 20060705
  Transmission Date: 20061208
  Serious: Yes (Other)
  Sender: FDA-Public Use
  Company Number: HQWYE592505JUL06

PATIENT
  Age: 56 Year
  Sex: Male
  Weight: 100 kg

DRUGS (2)
  1. TYGACIL [Suspect]
     Indication: ABDOMINAL INFECTION
     Dosage: SEE IMAGE
     Route: 042
     Dates: start: 20060515, end: 20060520
  2. TYGACIL [Suspect]
     Indication: ABDOMINAL INFECTION
     Dosage: SEE IMAGE
     Route: 042
     Dates: start: 20060529

REACTIONS (1)
  - BLOOD SODIUM INCREASED [None]
